FAERS Safety Report 9315401 (Version 2)
Quarter: 2013Q2

REPORT INFORMATION
  Report Type: Spontaneous
  Country: ZA (occurrence: ZA)
  Receive Date: 20130529
  Receipt Date: 20130613
  Transmission Date: 20140414
  Serious: Yes (Death, Hospitalization)
  Sender: FDA-Public Use
  Company Number: ZA-ASTRAZENECA-2013SE24808

PATIENT
  Sex: 0

DRUGS (1)
  1. SYNAGIS [Suspect]
     Route: 030

REACTIONS (5)
  - Death [Fatal]
  - Lower respiratory tract infection [Unknown]
  - Influenza like illness [Unknown]
  - Pyrexia [Unknown]
  - Respiratory syncytial virus test positive [Unknown]
